FAERS Safety Report 10247778 (Version 2)
Quarter: 2014Q3

REPORT INFORMATION
  Report Type: Spontaneous
  Country: IT (occurrence: IT)
  Receive Date: 20140619
  Receipt Date: 20140804
  Transmission Date: 20150326
  Serious: Yes (Hospitalization)
  Sender: FDA-Public Use
  Company Number: PHHY2014IT074632

PATIENT
  Age: 83 Year
  Sex: Male

DRUGS (11)
  1. VASORETIC [Concomitant]
     Active Substance: ENALAPRIL MALEATE\HYDROCHLOROTHIAZIDE
     Dosage: 1 DF, QD
     Route: 048
  2. ZYLORIC [Concomitant]
     Active Substance: ALLOPURINOL
     Dosage: 300 MG, UNK
     Route: 048
  3. SILODYX [Concomitant]
     Active Substance: SILODOSIN
     Dosage: 8 MG, QD
     Route: 048
  4. TICLOPIDINE DOROM [Suspect]
     Active Substance: TICLOPIDINE
     Dates: start: 20131125, end: 20131215
  5. AVODART [Concomitant]
     Active Substance: DUTASTERIDE
     Dosage: 1 DF, QD
     Route: 048
  6. LEVOFLOXACIN [Suspect]
     Active Substance: LEVOFLOXACIN
     Indication: BRONCHITIS
     Dosage: 500 MG, QD
     Route: 048
     Dates: start: 20131215
  7. CONGESCOR [Concomitant]
     Active Substance: BISOPROLOL
     Dosage: 2.5 MG, QD
     Route: 048
  8. ADALAT CRONO [Concomitant]
     Active Substance: NIFEDIPINE
     Dosage: 30 MG, QD
     Route: 048
  9. KOLIBRI [Suspect]
     Active Substance: ACETAMINOPHEN\TRAMADOL HYDROCHLORIDE
     Dosage: 2 DF, QD
     Route: 048
  10. PROVISACOR [Concomitant]
     Active Substance: ROSUVASTATIN
     Dosage: 10 MG, QD
     Route: 048
  11. LANSOX [Concomitant]
     Active Substance: LANSOPRAZOLE
     Dosage: 30 MG, UNK
     Route: 048

REACTIONS (4)
  - Tendon pain [Unknown]
  - Erythema [Unknown]
  - Pruritus [Recovering/Resolving]
  - Dermatitis exfoliative [Recovering/Resolving]

NARRATIVE: CASE EVENT DATE: 201312
